FAERS Safety Report 10883880 (Version 1)
Quarter: 2015Q1

REPORT INFORMATION
  Report Type: Report from Study
  Country: AU (occurrence: AU)
  Receive Date: 20150304
  Receipt Date: 20150304
  Transmission Date: 20150721
  Serious: Yes (Hospitalization)
  Sender: FDA-Public Use
  Company Number: AU-ALKEM-000892

PATIENT
  Age: 47 Year
  Sex: Female

DRUGS (9)
  1. ATENOLOL/ATENOLOL HYDROCHLORIDE [Suspect]
     Active Substance: ATENOLOL
  2. FELODIPINE. [Suspect]
     Active Substance: FELODIPINE
     Dosage: FELODIPINE ER (1000MG)
  3. PARACETAMOL [Suspect]
     Active Substance: ACETAMINOPHEN
  4. DOXEPIN/DOXEPIN HYDROCHLORIDE [Suspect]
     Active Substance: DOXEPIN HYDROCHLORIDE
  5. PREDNISONE. [Suspect]
     Active Substance: PREDNISONE
  6. AZATHIOPRINE. [Suspect]
     Active Substance: AZATHIOPRINE
  7. ACETYLSALICYLIC ACID [Suspect]
     Active Substance: ASPIRIN
  8. METFORMIN [Suspect]
     Active Substance: METFORMIN HYDROCHLORIDE
     Dosage: IMMEDIATE RELEASE PREPARATION
  9. SERTRALINE [Suspect]
     Active Substance: SERTRALINE HYDROCHLORIDE

REACTIONS (3)
  - Poisoning deliberate [None]
  - Bradycardia [Unknown]
  - Intentional overdose [Unknown]
